FAERS Safety Report 25259544 (Version 1)
Quarter: 2025Q2

REPORT INFORMATION
  Report Type: Spontaneous
  Country: US (occurrence: None)
  Receive Date: 20250430
  Receipt Date: 20250430
  Transmission Date: 20250717
  Serious: No
  Sender: FDA-CTU
  Company Number: None

PATIENT
  Age: 31 Year
  Sex: Female
  Weight: 85.5 kg

DRUGS (5)
  1. METRONIDAZOLE [Suspect]
     Active Substance: METRONIDAZOLE
     Indication: Root canal infection
     Dates: start: 20250423, end: 20250425
  2. IBUPROFEN [Suspect]
     Active Substance: IBUPROFEN
     Indication: Pain management
     Dates: start: 20250421, end: 20250425
  3. TYLENOL [Concomitant]
     Active Substance: ACETAMINOPHEN
  4. LORATADINE [Concomitant]
     Active Substance: LORATADINE
  5. FLONASE [Concomitant]
     Active Substance: FLUTICASONE PROPIONATE

REACTIONS (5)
  - Dysgeusia [None]
  - Nausea [None]
  - Vomiting [None]
  - Therapy change [None]
  - Incorrect dose administered [None]

NARRATIVE: CASE EVENT DATE: 20250425
